FAERS Safety Report 13942503 (Version 1)
Quarter: 2017Q3

REPORT INFORMATION
  Report Type: Spontaneous
  Country: US (occurrence: US)
  Receive Date: 20170906
  Receipt Date: 20170906
  Transmission Date: 20171127
  Serious: Yes (Hospitalization)
  Sender: FDA-Public Use
  Company Number: US-BAUSCH-BL-2017-026395

PATIENT
  Sex: Male

DRUGS (1)
  1. XIFAXAN [Suspect]
     Active Substance: RIFAXIMIN
     Indication: HEPATIC FAILURE
     Route: 065
     Dates: end: 2017

REACTIONS (4)
  - Hospice care [Unknown]
  - Dysphagia [Unknown]
  - Feeding disorder [Unknown]
  - Hepatic failure [Unknown]

NARRATIVE: CASE EVENT DATE: 2017
